FAERS Safety Report 5680214-3 (Version None)
Quarter: 2008Q1

REPORT INFORMATION
  Report Type: 
  Country: None (occurrence: None)
  Receive Date: 20080326
  Receipt Date: 20080319
  Transmission Date: 20080703
  Serious: Yes (Other)
  Sender: FDA-Public Use
  Company Number: PHHY2008JP03573

PATIENT
  Age: 69 Year
  Sex: Male

DRUGS (3)
  1. COMTAN [Suspect]
     Indication: PARKINSON'S DISEASE
     Dosage: 300 MG, UNK
     Route: 048
     Dates: start: 20080131, end: 20080206
  2. EC DOPARL [Concomitant]
     Dosage: 150MG
     Route: 048
     Dates: start: 20071108
  3. ARTANE [Concomitant]
     Dosage: 6MG
     Route: 048
     Dates: start: 20080131

REACTIONS (4)
  - ABNORMAL BEHAVIOUR [None]
  - DELIRIUM [None]
  - HALLUCINATION [None]
  - MEMORY IMPAIRMENT [None]
